FAERS Safety Report 16769469 (Version 3)
Quarter: 2019Q3

REPORT INFORMATION
  Report Type: Report from Study
  Country: US (occurrence: US)
  Receive Date: 20190903
  Receipt Date: 20190918
  Transmission Date: 20191005
  Serious: Yes (Hospitalization, Other)
  Sender: FDA-Public Use
  Company Number: US-BEH-2019106229

PATIENT
  Age: 31 Year
  Sex: Female
  Weight: 99.77 kg

DRUGS (3)
  1. HIZENTRA [Suspect]
     Active Substance: HUMAN IMMUNOGLOBULIN G
     Dosage: UNK
     Route: 065
     Dates: start: 20190830, end: 20190830
  2. HIZENTRA [Suspect]
     Active Substance: HUMAN IMMUNOGLOBULIN G
     Indication: PRIMARY IMMUNODEFICIENCY SYNDROME
     Dosage: UNK
     Route: 042
     Dates: start: 20190815, end: 20190830
  3. HIZENTRA [Suspect]
     Active Substance: HUMAN IMMUNOGLOBULIN G
     Indication: IMMUNODEFICIENCY COMMON VARIABLE
     Dosage: 10 GRAM, QW
     Route: 058
     Dates: start: 20190815, end: 20190830

REACTIONS (19)
  - Flushing [Unknown]
  - Migraine [Unknown]
  - Dysarthria [Unknown]
  - Loss of personal independence in daily activities [Unknown]
  - Adverse drug reaction [Recovered/Resolved]
  - Feeling abnormal [Unknown]
  - Mental status changes [Unknown]
  - Confusional state [Unknown]
  - Sinusitis [Unknown]
  - Dyspnoea [Recovered/Resolved]
  - Pain [Recovered/Resolved]
  - Musculoskeletal stiffness [Unknown]
  - Vital functions abnormal [Unknown]
  - Gait inability [Recovered/Resolved]
  - Incorrect route of product administration [Unknown]
  - Respiratory disorder [Unknown]
  - Headache [Recovered/Resolved]
  - No adverse event [Unknown]
  - Rash [Unknown]

NARRATIVE: CASE EVENT DATE: 201908
